FAERS Safety Report 19783021 (Version 3)
Quarter: 2021Q4

REPORT INFORMATION
  Report Type: Spontaneous
  Country: US (occurrence: US)
  Receive Date: 20210903
  Receipt Date: 20211021
  Transmission Date: 20220304
  Serious: No
  Sender: FDA-Public Use
  Company Number: US-JNJFOC-20210854470

PATIENT
  Age: 35 Year
  Sex: Female
  Weight: 64.47 kg

DRUGS (1)
  1. TREMFYA [Suspect]
     Active Substance: GUSELKUMAB
     Indication: Psoriasis
     Route: 065

REACTIONS (6)
  - Device leakage [Unknown]
  - Accidental exposure to product [Unknown]
  - Injection site reaction [Unknown]
  - Product dose omission issue [Unknown]
  - Device connection issue [Unknown]
  - Drug delivery system malfunction [Not Recovered/Not Resolved]

NARRATIVE: CASE EVENT DATE: 20210826
